FAERS Safety Report 8409625-X (Version None)
Quarter: 2012Q2

REPORT INFORMATION
  Report Type: 
  Country: None (occurrence: None)
  Receive Date: 20120605
  Receipt Date: 20120523
  Transmission Date: 20120825
  Serious: Yes (Death, Hospitalization, Other)
  Sender: FDA-Public Use
  Company Number: US-RANBAXY-2012US-56796

PATIENT
  Sex: Male

DRUGS (8)
  1. AMNESTEEM [Suspect]
     Dosage: UNK
     Route: 065
     Dates: start: 20060721, end: 20060821
  2. AMNESTEEM [Suspect]
     Dosage: UNK
     Route: 065
     Dates: start: 20100427, end: 20100527
  3. AMNESTEEM [Suspect]
     Dosage: UNK
     Route: 065
     Dates: start: 20110304, end: 20110404
  4. AMNESTEEM [Suspect]
     Dosage: UNK
     Route: 065
     Dates: start: 20110106, end: 20110204
  5. AMNESTEEM [Suspect]
     Dosage: UNK
     Route: 065
     Dates: start: 20100702, end: 20100902
  6. AMNESTEEM [Suspect]
     Indication: ACNE
     Dosage: UNK
     Route: 048
     Dates: start: 20050505, end: 20050605
  7. ISOTRETINOIN [Suspect]
     Indication: ACNE
     Dosage: UNK
     Route: 048
     Dates: start: 20061229, end: 20070306
  8. AMNESTEEM [Suspect]
     Dosage: UNK
     Route: 065
     Dates: start: 20050726, end: 20050826

REACTIONS (11)
  - DIARRHOEA [None]
  - INFLAMMATORY BOWEL DISEASE [None]
  - COLITIS [None]
  - RECTAL HAEMORRHAGE [None]
  - ABDOMINAL PAIN [None]
  - GASTROINTESTINAL DISORDER [None]
  - COLITIS ULCERATIVE [None]
  - CROHN'S DISEASE [None]
  - IRRITABLE BOWEL SYNDROME [None]
  - GASTROINTESTINAL OEDEMA [None]
  - ANAEMIA [None]
